FAERS Safety Report 5355811-5 (Version None)
Quarter: 2007Q2

REPORT INFORMATION
  Report Type: 
  Country: None (occurrence: None)
  Receive Date: 20070613
  Receipt Date: 20070531
  Transmission Date: 20071010
  Serious: Yes (Other)
  Sender: FDA-Public Use
  Company Number: FR-KINGPHARMUSA00001-K200700632

PATIENT

DRUGS (1)
  1. ALTACE [Suspect]
     Indication: HYPERTENSION
     Dosage: 5 MG, QD
     Route: 048
     Dates: start: 20040402

REACTIONS (13)
  - C-REACTIVE PROTEIN INCREASED [None]
  - CARPAL TUNNEL SYNDROME [None]
  - EOSINOPHILIA [None]
  - EOSINOPHILIC FASCIITIS [None]
  - HYPERGAMMAGLOBULINAEMIA [None]
  - INFLAMMATION [None]
  - MYALGIA [None]
  - OEDEMA [None]
  - OEDEMA PERIPHERAL [None]
  - PAIN IN EXTREMITY [None]
  - SKIN DISORDER [None]
  - SYNOVIAL CYST [None]
  - URTICARIA [None]
